FAERS Safety Report 4277408-0 (Version None)
Quarter: 2004Q1

REPORT INFORMATION
  Report Type: 
  Country: None (occurrence: None)
  Receive Date: 20040122
  Receipt Date: 20040115
  Transmission Date: 20041129
  Serious: Yes (Hospitalization)
  Sender: FDA-Public Use
  Company Number: US-GLAXOSMITHKLINE-A0493769A

PATIENT
  Age: 41 Year
  Sex: Male

DRUGS (6)
  1. LAMIVUDINE [Suspect]
     Indication: HEPATITIS B
     Dosage: 100MG PER DAY
     Route: 048
     Dates: start: 20020417
  2. LITHIUM CARBONATE [Concomitant]
     Dates: start: 20020719
  3. WELLBUTRIN [Concomitant]
     Dates: start: 20020719
  4. ZESTRIL [Concomitant]
     Dates: start: 20020719
  5. DILTIAZEM [Concomitant]
     Dates: start: 20020719
  6. XANAX [Concomitant]
     Dates: start: 20010201

REACTIONS (2)
  - ACCIDENTAL OVERDOSE [None]
  - DIZZINESS [None]
